FAERS Safety Report 7237600-X (Version None)
Quarter: 2011Q1

REPORT INFORMATION
  Report Type: 
  Country: None (occurrence: None)
  Receive Date: 20110121
  Receipt Date: 20110111
  Transmission Date: 20110831
  Serious: Yes (Hospitalization, Other)
  Sender: FDA-Public Use
  Company Number: US-JNJFOC-20110102969

PATIENT
  Age: 21 Year
  Sex: Male

DRUGS (15)
  1. INFLIXIMAB, RECOMBINANT [Suspect]
     Route: 042
  2. INFLIXIMAB, RECOMBINANT [Suspect]
     Route: 042
  3. INFLIXIMAB, RECOMBINANT [Suspect]
     Route: 042
  4. INFLIXIMAB, RECOMBINANT [Suspect]
     Route: 042
  5. STEROIDS NOS [Concomitant]
  6. INFLIXIMAB, RECOMBINANT [Suspect]
     Route: 042
  7. INFLIXIMAB, RECOMBINANT [Suspect]
     Route: 042
  8. MERCAPTOPURINE [Concomitant]
     Indication: CROHN'S DISEASE
  9. INFLIXIMAB, RECOMBINANT [Suspect]
     Route: 042
  10. INFLIXIMAB, RECOMBINANT [Suspect]
     Route: 042
  11. INFLIXIMAB, RECOMBINANT [Suspect]
     Route: 042
  12. INFLIXIMAB, RECOMBINANT [Suspect]
     Indication: CROHN'S DISEASE
     Route: 042
  13. INFLIXIMAB, RECOMBINANT [Suspect]
     Route: 042
  14. INFLIXIMAB, RECOMBINANT [Suspect]
     Route: 042
  15. INFLIXIMAB, RECOMBINANT [Suspect]
     Route: 042

REACTIONS (1)
  - HISTOPLASMOSIS [None]
